FAERS Safety Report 16417179 (Version 1)
Quarter: 2019Q2

REPORT INFORMATION
  Report Type: Report from Study
  Country: JP (occurrence: JP)
  Receive Date: 20190611
  Receipt Date: 20190611
  Transmission Date: 20190711
  Serious: Yes (Hospitalization)
  Sender: FDA-Public Use
  Company Number: JP-EISAI MEDICAL RESEARCH-EC-2019-057517

PATIENT
  Age: 75 Year
  Sex: Male
  Weight: 59 kg

DRUGS (9)
  1. LENVIMA [Suspect]
     Active Substance: LENVATINIB
     Dosage: 8 MG 3 DAYS ON/4 DAYS OFF
     Route: 048
     Dates: start: 20190220, end: 20190306
  2. LENVIMA [Suspect]
     Active Substance: LENVATINIB
     Dosage: 8 MG 4 DAYS ON/3 DAYS OFF
     Route: 048
     Dates: start: 20190307, end: 20190317
  3. VALSARTAN. [Concomitant]
     Active Substance: VALSARTAN
  4. LENVIMA [Suspect]
     Active Substance: LENVATINIB
     Dosage: 4 MG 4 DAYS ON/3 DAYS OFF
     Route: 048
     Dates: start: 20190318, end: 20190324
  5. LENVIMA [Suspect]
     Active Substance: LENVATINIB
     Route: 048
     Dates: start: 20190410
  6. LENVIMA [Suspect]
     Active Substance: LENVATINIB
     Route: 048
     Dates: start: 20190208, end: 20190219
  7. LENVIMA [Suspect]
     Active Substance: LENVATINIB
     Indication: HEPATOCELLULAR CARCINOMA
     Route: 048
     Dates: start: 20190122, end: 20190207
  8. AMLODIPINE [Concomitant]
     Active Substance: AMLODIPINE BESYLATE
  9. LENVIMA [Suspect]
     Active Substance: LENVATINIB
     Dosage: 4 MG 5 DAYS ON/2 DAYS OFF
     Route: 048
     Dates: start: 20190325, end: 20190331

REACTIONS (1)
  - Decreased appetite [Recovered/Resolved]

NARRATIVE: CASE EVENT DATE: 20190226
